FAERS Safety Report 10204981 (Version 1)
Quarter: 2014Q2

REPORT INFORMATION
  Report Type: Spontaneous
  Country: US (occurrence: US)
  Receive Date: 20140529
  Receipt Date: 20140529
  Transmission Date: 20141212
  Serious: No
  Sender: FDA-Public Use
  Company Number: US-BAYER-2014-063897

PATIENT
  Age: 74 Year
  Sex: Male

DRUGS (3)
  1. LEVITRA [Suspect]
     Indication: ERECTILE DYSFUNCTION
     Dosage: 20 MG, QD
     Route: 048
     Dates: end: 20140315
  2. ZYTIGA [Concomitant]
  3. PREDNISONE [Concomitant]

REACTIONS (1)
  - Drug ineffective [None]
